FAERS Safety Report 4653450-2 (Version None)
Quarter: 2005Q2

REPORT INFORMATION
  Report Type: 
  Country: None (occurrence: None)
  Receive Date: 20050505
  Receipt Date: 20050407
  Transmission Date: 20051028
  Serious: Yes (Life-Threatening)
  Sender: FDA-Public Use
  Company Number: US-GLAXOSMITHKLINE-A0553385A

PATIENT
  Age: 21 Year
  Sex: Female

DRUGS (2)
  1. WELLBUTRIN [Suspect]
     Indication: DEPRESSION
     Dosage: 300MG UNKNOWN
     Route: 048
     Dates: start: 20050301, end: 20050401
  2. NO CONCURRENT MEDICATION [Concomitant]

REACTIONS (4)
  - AMNESIA [None]
  - CYANOSIS [None]
  - GRAND MAL CONVULSION [None]
  - MUSCLE TWITCHING [None]
